FAERS Safety Report 22130847 (Version 1)
Quarter: 2023Q1

REPORT INFORMATION
  Report Type: Spontaneous
  Country: US (occurrence: None)
  Receive Date: 20230322
  Receipt Date: 20230322
  Transmission Date: 20230418
  Serious: Yes (Other)
  Sender: FDA-Public Use
  Company Number: None

PATIENT
  Age: 66 Year
  Sex: Female
  Weight: 53.55 kg

DRUGS (8)
  1. ELACESTRANT [Suspect]
     Active Substance: ELACESTRANT
     Indication: Hormone receptor positive breast cancer
     Dosage: FREQUENCY : DAILY;?
     Route: 048
     Dates: start: 20230308, end: 20230322
  2. ELACESTRANT [Suspect]
     Active Substance: ELACESTRANT
     Indication: Breast cancer metastatic
  3. ONDANSETRON [Concomitant]
     Active Substance: ONDANSETRON
     Dates: start: 20230317
  4. Prochlorperazine 10mg [Concomitant]
     Dates: start: 20230316
  5. OSCAL [Concomitant]
     Active Substance: CALCIUM CARBONATE
  6. LEVOTHYROXINE [Concomitant]
     Active Substance: LEVOTHYROXINE
  7. VITAMINS [Concomitant]
     Active Substance: VITAMINS
  8. COLACE [Concomitant]
     Active Substance: DOCUSATE SODIUM

REACTIONS (5)
  - Vomiting [None]
  - Nausea [None]
  - Diarrhoea [None]
  - Decreased appetite [None]
  - Weight decreased [None]

NARRATIVE: CASE EVENT DATE: 20230322
